FAERS Safety Report 16728103 (Version 1)
Quarter: 2019Q3

REPORT INFORMATION
  Report Type: Spontaneous
  Country: CA (occurrence: CA)
  Receive Date: 20190822
  Receipt Date: 20190822
  Transmission Date: 20191005
  Serious: Yes (Other)
  Sender: FDA-Public Use
  Company Number: CA-AUROBINDO-AUR-APL-2019-054279

PATIENT

DRUGS (29)
  1. NAPROXEN. [Suspect]
     Active Substance: NAPROXEN
     Indication: PRODUCT USED FOR UNKNOWN INDICATION
     Dosage: UNK
     Route: 065
  2. ZANTAC [Suspect]
     Active Substance: RANITIDINE HYDROCHLORIDE
     Indication: PRODUCT USED FOR UNKNOWN INDICATION
     Dosage: UNK
     Route: 065
  3. INSULIN GLARGINE [Concomitant]
     Active Substance: INSULIN GLARGINE
     Indication: PRODUCT USED FOR UNKNOWN INDICATION
     Dosage: UNK
     Route: 058
  4. EZETIMIBE TABLETS [Suspect]
     Active Substance: EZETIMIBE
     Indication: PRODUCT USED FOR UNKNOWN INDICATION
     Dosage: UNK
     Route: 065
  5. METFORMIN [Suspect]
     Active Substance: METFORMIN HYDROCHLORIDE
     Indication: TYPE 2 DIABETES MELLITUS
     Dosage: UNK
     Route: 048
  6. GLICLAZIDE [Suspect]
     Active Substance: GLICLAZIDE
     Indication: PRODUCT USED FOR UNKNOWN INDICATION
     Dosage: UNK
     Route: 065
  7. INSULIN [Suspect]
     Active Substance: INSULIN NOS
     Indication: PRODUCT USED FOR UNKNOWN INDICATION
     Dosage: UNK
     Route: 048
  8. PHENETICILLIN POTASSIUM [Suspect]
     Active Substance: PHENETHICILLIN POTASSIUM
     Indication: PRODUCT USED FOR UNKNOWN INDICATION
     Dosage: UNK
     Route: 065
  9. ATORVASTATIN [Concomitant]
     Active Substance: ATORVASTATIN
     Indication: PRODUCT USED FOR UNKNOWN INDICATION
     Dosage: UNK
     Route: 065
  10. ESOMEPRAZOLE. [Concomitant]
     Active Substance: ESOMEPRAZOLE MAGNESIUM
     Indication: PRODUCT USED FOR UNKNOWN INDICATION
     Dosage: 20 MILLIGRAM, DAILY
     Route: 048
  11. FENOFIBRATE. [Concomitant]
     Active Substance: FENOFIBRATE
     Indication: PRODUCT USED FOR UNKNOWN INDICATION
     Dosage: 160 MILLIGRAM, DAILY
     Route: 048
  12. IRBESARTAN. [Concomitant]
     Active Substance: IRBESARTAN
     Indication: PRODUCT USED FOR UNKNOWN INDICATION
     Dosage: 150 MILLIGRAM, DAILY
     Route: 048
  13. MELOXICAM. [Suspect]
     Active Substance: MELOXICAM
     Indication: PRODUCT USED FOR UNKNOWN INDICATION
     Dosage: UNK
     Route: 065
  14. CODEINE SULFATE. [Suspect]
     Active Substance: CODEINE SULFATE
     Indication: PRODUCT USED FOR UNKNOWN INDICATION
     Dosage: UNK
     Route: 065
  15. GATIFLOXACIN. [Suspect]
     Active Substance: GATIFLOXACIN
     Indication: PRODUCT USED FOR UNKNOWN INDICATION
     Dosage: UNK
     Route: 065
  16. VIOXX [Suspect]
     Active Substance: ROFECOXIB
     Indication: PRODUCT USED FOR UNKNOWN INDICATION
     Dosage: UNK
     Route: 065
  17. GABAPENTIN. [Suspect]
     Active Substance: GABAPENTIN
     Indication: PRODUCT USED FOR UNKNOWN INDICATION
     Dosage: UNK
     Route: 065
  18. BENZYLPENICILLIN SODIUM [Suspect]
     Active Substance: PENICILLIN G SODIUM
     Indication: PRODUCT USED FOR UNKNOWN INDICATION
     Dosage: UNK
     Route: 065
  19. PRILOCAINE [Suspect]
     Active Substance: PRILOCAINE
     Indication: PRODUCT USED FOR UNKNOWN INDICATION
     Dosage: UNK
     Route: 065
  20. HYDROMORPHONE HYDROCHLORIDE. [Concomitant]
     Active Substance: HYDROMORPHONE HYDROCHLORIDE
     Indication: PRODUCT USED FOR UNKNOWN INDICATION
     Dosage: 3 MILLIGRAM, TWO TIMES A DAY
     Route: 048
  21. TOPIRAMATE. [Suspect]
     Active Substance: TOPIRAMATE
     Indication: PRODUCT USED FOR UNKNOWN INDICATION
     Dosage: UNK
     Route: 065
  22. AVELOX [Suspect]
     Active Substance: MOXIFLOXACIN HYDROCHLORIDE
     Indication: PRODUCT USED FOR UNKNOWN INDICATION
     Dosage: UNK
     Route: 065
  23. GLYBURIDE. [Suspect]
     Active Substance: GLYBURIDE
     Indication: TYPE 2 DIABETES MELLITUS
     Dosage: UNK
     Route: 065
  24. GEMCITABINE. [Concomitant]
     Active Substance: GEMCITABINE
     Indication: ADENOCARCINOMA PANCREAS
     Dosage: UNK
     Route: 065
  25. RAMIPRIL. [Suspect]
     Active Substance: RAMIPRIL
     Indication: PRODUCT USED FOR UNKNOWN INDICATION
     Dosage: UNK
     Route: 065
  26. MORPHINE SULFATE. [Suspect]
     Active Substance: MORPHINE SULFATE
     Indication: PAIN
     Dosage: 25 MILLIGRAM, DAILY
     Route: 065
  27. ALTACE [Concomitant]
     Active Substance: RAMIPRIL
     Indication: PRODUCT USED FOR UNKNOWN INDICATION
     Dosage: UNK
     Route: 048
  28. CELECOXIB. [Concomitant]
     Active Substance: CELECOXIB
     Indication: PRODUCT USED FOR UNKNOWN INDICATION
     Dosage: UNK
     Route: 065
  29. HYDROMORPHONE HYDROCHLORIDE. [Concomitant]
     Active Substance: HYDROMORPHONE HYDROCHLORIDE
     Dosage: 24 MILLIGRAM, DAILY
     Route: 048

REACTIONS (2)
  - Drug intolerance [Unknown]
  - Anaphylactic reaction [Unknown]
